FAERS Safety Report 13358840 (Version 3)
Quarter: 2019Q2

REPORT INFORMATION
  Report Type: Report from Study
  Country: DE (occurrence: DE)
  Receive Date: 20170322
  Receipt Date: 20190524
  Transmission Date: 20190711
  Serious: Yes (Other)
  Sender: FDA-Public Use
  Company Number: DE-BIOGEN-2017BI00374730

PATIENT
  Sex: Female

DRUGS (1)
  1. AVONEX [Suspect]
     Active Substance: INTERFERON BETA-1A
     Indication: MULTIPLE SCLEROSIS
     Dosage: 30 MICROGRAM(S) EVERY WEEK
     Route: 030
     Dates: start: 20080401, end: 2015

REACTIONS (2)
  - Umbilical cord abnormality [Recovered/Resolved]
  - Maternal exposure during pregnancy [Recovered/Resolved]
